FAERS Safety Report 24363507 (Version 5)
Quarter: 2025Q2

REPORT INFORMATION
  Report Type: Spontaneous
  Country: US (occurrence: US)
  Receive Date: 20240925
  Receipt Date: 20250630
  Transmission Date: 20250717
  Serious: Yes (Other)
  Sender: SANOFI AVENTIS
  Company Number: US-SA-2024SA271797

PATIENT
  Age: 71 Year
  Sex: Female

DRUGS (1)
  1. DUPIXENT [Suspect]
     Active Substance: DUPILUMAB
     Indication: Dermatitis atopic
     Dosage: 300 MG, QOW
     Route: 058

REACTIONS (12)
  - Acute kidney injury [Unknown]
  - Haematuria [Unknown]
  - Rectal haemorrhage [Unknown]
  - Inflammation [Unknown]
  - Dry skin [Unknown]
  - Gastrointestinal infection [Unknown]
  - Abdominal pain [Unknown]
  - Full blood count decreased [Unknown]
  - Creatinine renal clearance increased [Unknown]
  - Asthma [Unknown]
  - Pruritus [Unknown]
  - Rebound effect [Unknown]

NARRATIVE: CASE EVENT DATE: 20240101
